FAERS Safety Report 7258813-7 (Version None)
Quarter: 2011Q1

REPORT INFORMATION
  Report Type: 
  Country: None (occurrence: None)
  Receive Date: 20110129
  Receipt Date: 20100503
  Transmission Date: 20110831
  Serious: No
  Sender: FDA-Public Use
  Company Number: US-ABBOTT-10P-163-0642704-00

PATIENT
  Sex: Female

DRUGS (5)
  1. HUMIRA [Suspect]
     Indication: PSORIATIC ARTHROPATHY
     Route: 050
     Dates: start: 20100401
  2. HUMIRA [Suspect]
     Indication: PSORIASIS
     Route: 050
     Dates: start: 20100407, end: 20100407
  3. UNKNOWN MEDICATION [Concomitant]
     Indication: HYPOTHYROIDISM
  4. COZAAR [Concomitant]
     Indication: HYPERTENSION
     Dates: start: 19900101
  5. AMBIEN [Concomitant]
     Indication: PRODUCT USED FOR UNKNOWN INDICATION

REACTIONS (1)
  - VAGINAL HAEMORRHAGE [None]
